FAERS Safety Report 5812444-1 (Version None)
Quarter: 2008Q3

REPORT INFORMATION
  Report Type: 
  Country: None (occurrence: None)
  Receive Date: 20080716
  Receipt Date: 20080709
  Transmission Date: 20090109
  Serious: Yes (Other)
  Sender: FDA-Public Use
  Company Number: US-ALLERGAN-0805549US

PATIENT
  Sex: Female
  Weight: 65.76 kg

DRUGS (1)
  1. BOTOX [Suspect]
     Indication: SKIN WRINKLING
     Dosage: UNK, SINGLE
     Dates: start: 20070701, end: 20070701

REACTIONS (8)
  - APHASIA [None]
  - DYSPHAGIA [None]
  - DYSPHONIA [None]
  - DYSPNOEA [None]
  - INJECTION SITE ULCER [None]
  - SWOLLEN TONGUE [None]
  - TONGUE DISORDER [None]
  - WEIGHT DECREASED [None]
